FAERS Safety Report 6823660-4 (Version None)
Quarter: 2010Q3

REPORT INFORMATION
  Report Type: 
  Country: None (occurrence: None)
  Receive Date: 20100708
  Receipt Date: 20060823
  Transmission Date: 20110219
  Serious: Yes (Other)
  Sender: FDA-Public Use
  Company Number: US-PFIZER INC-2006103517

PATIENT
  Sex: Male
  Weight: 63.5 kg

DRUGS (3)
  1. CHANTIX [Suspect]
     Indication: SMOKING CESSATION THERAPY
     Route: 048
     Dates: start: 20060801
  2. VICODIN [Concomitant]
     Route: 065
  3. TEGRETOL [Concomitant]
     Route: 065

REACTIONS (6)
  - CHEST PAIN [None]
  - EYELID OEDEMA [None]
  - INJURY [None]
  - PRURITUS [None]
  - SWELLING FACE [None]
  - TOBACCO USER [None]
